FAERS Safety Report 25728461 (Version 1)
Quarter: 2025Q3

REPORT INFORMATION
  Report Type: Spontaneous
  Country: HK (occurrence: HK)
  Receive Date: 20250826
  Receipt Date: 20250826
  Transmission Date: 20251020
  Serious: Yes (Other)
  Sender: PFIZER
  Company Number: HK-PFIZER INC-PV202500101902

PATIENT

DRUGS (1)
  1. LORLATINIB [Suspect]
     Active Substance: LORLATINIB

REACTIONS (4)
  - Hallucination [Unknown]
  - Blindness [Unknown]
  - Oedema [Unknown]
  - Hepatic enzyme increased [Unknown]
